FAERS Safety Report 12174504 (Version 1)
Quarter: 2016Q1

REPORT INFORMATION
  Report Type: Spontaneous
  Country: SE (occurrence: SE)
  Receive Date: 20160312
  Receipt Date: 20160312
  Transmission Date: 20160526
  Serious: Yes (Other)
  Sender: FDA-Public Use
  Company Number: SE-ACCORD-038804

PATIENT
  Age: 69 Year
  Sex: Male

DRUGS (8)
  1. ALVEDON [Concomitant]
     Active Substance: ACETAMINOPHEN
  2. ELIQUIS [Suspect]
     Active Substance: APIXABAN
     Indication: ATRIAL FIBRILLATION
     Dosage: STRENGTH 5 MG
     Route: 048
     Dates: start: 20141225
  3. TESTOGEL [Concomitant]
     Active Substance: TESTOSTERONE
  4. OMEPRAZOLE. [Concomitant]
     Active Substance: OMEPRAZOLE
  5. RINEXIN [Concomitant]
     Active Substance: PHENYLPROPANOLAMINE
  6. RHINOCORT AQUA [Concomitant]
     Active Substance: BUDESONIDE
  7. AMLODIPINE [Suspect]
     Active Substance: AMLODIPINE BESYLATE
     Indication: HYPERTENSION
     Dosage: STRENGTH. 10 MG
     Route: 048
     Dates: start: 201501
  8. CANDESARTAN ACTAVIS [Suspect]
     Active Substance: CANDESARTAN
     Indication: HYPERTENSION
     Dosage: STRENGTH. 32 MG??INITIALLY RECEIVED AT THE DOSE OF 4 MG.
     Route: 048
     Dates: start: 201501

REACTIONS (13)
  - Paraesthesia [Not Recovered/Not Resolved]
  - Blood pressure increased [Recovered/Resolved]
  - Headache [Not Recovered/Not Resolved]
  - Intervertebral disc protrusion [Unknown]
  - Pain [Unknown]
  - Muscle spasms [Not Recovered/Not Resolved]
  - Formication [Not Recovered/Not Resolved]
  - Myalgia [Unknown]
  - Asthenia [Unknown]
  - Nocturia [Unknown]
  - Pollakiuria [Unknown]
  - Arthralgia [Not Recovered/Not Resolved]
  - Joint swelling [Not Recovered/Not Resolved]

NARRATIVE: CASE EVENT DATE: 2015
